FAERS Safety Report 5192779-9 (Version None)
Quarter: 2006Q4

REPORT INFORMATION
  Report Type: 
  Country: None (occurrence: None)
  Receive Date: 20061221
  Receipt Date: 20061208
  Transmission Date: 20070319
  Serious: Yes (Hospitalization)
  Sender: FDA-Public Use
  Company Number: 2006PV026607

PATIENT
  Age: 70 Year
  Sex: Female
  Weight: 117.9352 kg

DRUGS (6)
  1. BYETTA [Suspect]
     Indication: DIABETES MELLITUS NON-INSULIN-DEPENDENT
     Dosage: 10 MCG BID SC ; 5 MCG BID SC
     Route: 058
     Dates: start: 20060201, end: 20060401
  2. BYETTA [Suspect]
     Indication: DIABETES MELLITUS NON-INSULIN-DEPENDENT
     Dosage: 10 MCG BID SC ; 5 MCG BID SC
     Route: 058
     Dates: start: 20060401
  3. HUMALOG [Concomitant]
  4. LANTUS [Concomitant]
  5. PREDNISONE TAB [Concomitant]
  6. STEROID INJECTION [Concomitant]

REACTIONS (8)
  - ABASIA [None]
  - BLOOD GLUCOSE INCREASED [None]
  - DECREASED APPETITE [None]
  - DIARRHOEA [None]
  - INTERVERTEBRAL DISC PROTRUSION [None]
  - NASOPHARYNGITIS [None]
  - NAUSEA [None]
  - WEIGHT DECREASED [None]
